FAERS Safety Report 6613685-6 (Version None)
Quarter: 2010Q1

REPORT INFORMATION
  Report Type: 
  Country: None (occurrence: None)
  Receive Date: 20100304
  Receipt Date: 20100216
  Transmission Date: 20100710
  Serious: Yes (Hospitalization, Other)
  Sender: FDA-Public Use
  Company Number: US-ROCHE-688167

PATIENT
  Sex: Male
  Weight: 68 kg

DRUGS (5)
  1. VALIUM [Suspect]
     Indication: DRUG USE FOR UNKNOWN INDICATION
     Route: 065
  2. FENTANYL [Suspect]
     Dosage: DRUG REPORTED: FENTANYL-25
     Route: 062
     Dates: start: 20091118, end: 20091119
  3. TRILEPTAL [Concomitant]
     Dates: start: 20080101
  4. ZOLOFT [Concomitant]
     Dates: start: 20080101
  5. ZYPREXA [Concomitant]
     Dates: start: 20080101

REACTIONS (10)
  - CHILLS [None]
  - DYSARTHRIA [None]
  - DYSPNOEA [None]
  - FALL [None]
  - FATIGUE [None]
  - INCOHERENT [None]
  - MEMORY IMPAIRMENT [None]
  - NASOPHARYNGITIS [None]
  - RESPIRATORY ARREST [None]
  - RESPIRATORY DISTRESS [None]
